FAERS Safety Report 12531125 (Version 1)
Quarter: 2016Q3

REPORT INFORMATION
  Report Type: Spontaneous
  Country: VE (occurrence: VE)
  Receive Date: 20160706
  Receipt Date: 20160706
  Transmission Date: 20161109
  Serious: Yes (Hospitalization)
  Sender: FDA-Public Use
  Company Number: PHHY2016VE091128

PATIENT
  Sex: Female

DRUGS (2)
  1. VALSARTAN. [Suspect]
     Active Substance: VALSARTAN
     Indication: HYPERTENSION
     Dosage: 80 MG, QD
     Route: 065
  2. DIOVAN [Suspect]
     Active Substance: VALSARTAN
     Indication: HYPERTENSION
     Dosage: 80 MG, QD
     Route: 048

REACTIONS (2)
  - Blood pressure inadequately controlled [Recovering/Resolving]
  - Hypertension [Recovering/Resolving]
